FAERS Safety Report 10519713 (Version 1)
Quarter: 2014Q4

REPORT INFORMATION
  Report Type: Spontaneous
  Country: US (occurrence: US)
  Receive Date: 20141015
  Receipt Date: 20141015
  Transmission Date: 20150528
  Serious: Yes (Other)
  Sender: FDA-Public Use
  Company Number: US-TEVA-515017USA

PATIENT

DRUGS (7)
  1. CAPTOPRIL. [Suspect]
     Active Substance: CAPTOPRIL
  2. VIMPATE [Concomitant]
  3. MIDAZOLAM [Concomitant]
     Active Substance: MIDAZOLAM\MIDAZOLAM HYDROCHLORIDE
  4. TRILEPTAL [Concomitant]
     Active Substance: OXCARBAZEPINE
  5. KEPPRA [Suspect]
     Active Substance: LEVETIRACETAM
     Route: 065
  6. TOPIRAMATE. [Concomitant]
     Active Substance: TOPIRAMATE
  7. DIAZEPAM. [Concomitant]
     Active Substance: DIAZEPAM

REACTIONS (8)
  - Hypoaesthesia [Unknown]
  - Suicidal ideation [Unknown]
  - Learning disability [Unknown]
  - Dysarthria [Unknown]
  - Drooling [Unknown]
  - Dyslexia [Unknown]
  - Hypoaesthesia oral [Unknown]
  - Paraesthesia [Unknown]
